FAERS Safety Report 4922085-6 (Version None)
Quarter: 2006Q1

REPORT INFORMATION
  Report Type: 
  Country: None (occurrence: None)
  Receive Date: 20060222
  Receipt Date: 20060222
  Transmission Date: 20060701
  Serious: Yes (Hospitalization)
  Sender: FDA-Public Use
  Company Number: None

PATIENT
  Age: 84 Year
  Sex: Female
  Weight: 67 kg

DRUGS (12)
  1. ENOXAPARIN SODIUM [Suspect]
     Indication: DEEP VEIN THROMBOSIS
     Dosage: 70 MG SQ Q12H
     Route: 058
     Dates: start: 20051009, end: 20051013
  2. ENOXAPARIN SODIUM [Suspect]
     Indication: PULMONARY EMBOLISM
     Dosage: 70 MG SQ Q12H
     Route: 058
     Dates: start: 20051009, end: 20051013
  3. LACTULOSE [Concomitant]
  4. ZOSYN [Concomitant]
  5. ATIVAN [Concomitant]
  6. MORPHINE [Concomitant]
  7. ASPIRIN [Concomitant]
  8. LEVOTHYROXINE SODIUM [Concomitant]
  9. METOPROLOL [Concomitant]
  10. FLU VACCINE [Concomitant]
  11. PERCOCET [Concomitant]
  12. COUMADIN [Concomitant]

REACTIONS (2)
  - HEPARIN-INDUCED THROMBOCYTOPENIA [None]
  - PLATELET COUNT DECREASED [None]
